FAERS Safety Report 9052275 (Version 1)
Quarter: 2013Q1

REPORT INFORMATION
  Report Type: Spontaneous
  Country: RU (occurrence: RU)
  Receive Date: 20130206
  Receipt Date: 20130206
  Transmission Date: 20140127
  Serious: Yes (Other)
  Sender: FDA-Public Use
  Company Number: RU-PFIZER INC-2013045774

PATIENT
  Sex: Male

DRUGS (1)
  1. LIPRIMAR [Suspect]
     Dosage: 40 MG, UNK

REACTIONS (1)
  - Gastroduodenal ulcer [Unknown]
